FAERS Safety Report 9235727 (Version 2)
Quarter: 2013Q2

REPORT INFORMATION
  Report Type: Spontaneous
  Country: US (occurrence: None)
  Receive Date: 20121031
  Receipt Date: 20130107
  Transmission Date: 20140414
  Serious: Yes (Other)
  Sender: FDA-Public Use
  Company Number: PHEH2012US016508

PATIENT
  Age: 34 None
  Sex: Female

DRUGS (2)
  1. GILENYA [Suspect]
     Indication: MULTIPLE SCLEROSIS
     Route: 048
     Dates: start: 20111206
  2. AMPYRA (FAMPRIDINE) [Concomitant]

REACTIONS (4)
  - White blood cell count decreased [None]
  - Lymphocyte count decreased [None]
  - Infection [None]
  - Malaise [None]
